FAERS Safety Report 6226988-4 (Version None)
Quarter: 2009Q2

REPORT INFORMATION
  Report Type: 
  Country: None (occurrence: None)
  Receive Date: 20090612
  Receipt Date: 20090526
  Transmission Date: 20091009
  Serious: No
  Sender: FDA-Public Use
  Company Number: US-ABBOTT-09P-163-0575707-00

PATIENT
  Sex: Female
  Weight: 69.462 kg

DRUGS (3)
  1. HUMIRA [Suspect]
     Indication: CROHN'S DISEASE
     Dates: start: 20090512, end: 20090512
  2. HUMIRA [Suspect]
     Dosage: DAY 15
     Dates: start: 20090526
  3. PREDNISONE [Concomitant]
     Indication: DRUG USE FOR UNKNOWN INDICATION

REACTIONS (3)
  - ACNE [None]
  - INJECTION SITE IRRITATION [None]
  - INJECTION SITE PAIN [None]
